FAERS Safety Report 5663904-8 (Version None)
Quarter: 2008Q1

REPORT INFORMATION
  Report Type: 
  Country: None (occurrence: None)
  Receive Date: 20080311
  Receipt Date: 20080304
  Transmission Date: 20080703
  Serious: Yes (Other)
  Sender: FDA-Public Use
  Company Number: 2008SP004486

PATIENT
  Age: 66 Year
  Sex: Male

DRUGS (2)
  1. NASONEX [Suspect]
     Indication: NASAL POLYPS
     Dosage: 1 DF;QD
     Dates: start: 20071018, end: 20071119
  2. SYNTARIS [Concomitant]

REACTIONS (1)
  - GLAUCOMA [None]
